FAERS Safety Report 16831956 (Version 1)
Quarter: 2019Q3

REPORT INFORMATION
  Report Type: Spontaneous
  Country: US (occurrence: US)
  Receive Date: 20190920
  Receipt Date: 20190920
  Transmission Date: 20191005
  Serious: Yes (Death)
  Sender: FDA-Public Use
  Company Number: US-ROCHE-2415294

PATIENT
  Age: 74 Year
  Sex: Male

DRUGS (13)
  1. TORSEMIDE. [Concomitant]
     Active Substance: TORSEMIDE
  2. ALLOPURINOL. [Concomitant]
     Active Substance: ALLOPURINOL
  3. ESBRIET [Suspect]
     Active Substance: PIRFENIDONE
     Indication: IDIOPATHIC PULMONARY FIBROSIS
     Route: 048
     Dates: start: 20180504, end: 20190913
  4. DESLORATADINE. [Concomitant]
     Active Substance: DESLORATADINE
  5. FINASTERIDE. [Concomitant]
     Active Substance: FINASTERIDE
  6. VITAMIN C [Concomitant]
     Active Substance: ASCORBIC ACID
  7. CARVEDILOL. [Concomitant]
     Active Substance: CARVEDILOL
     Route: 065
  8. OLMESARTAN MEDOXOMIL. [Concomitant]
     Active Substance: OLMESARTAN MEDOXOMIL
  9. ASPIRIN. [Concomitant]
     Active Substance: ASPIRIN
  10. DILTIAZEM. [Concomitant]
     Active Substance: DILTIAZEM
  11. XARELTO [Concomitant]
     Active Substance: RIVAROXABAN
  12. KLOR-CON [Concomitant]
     Active Substance: POTASSIUM CHLORIDE
  13. ATORVASTATIN [Concomitant]
     Active Substance: ATORVASTATIN

REACTIONS (1)
  - Death [Fatal]

NARRATIVE: CASE EVENT DATE: 20190913
